FAERS Safety Report 7796803-6 (Version None)
Quarter: 2011Q4

REPORT INFORMATION
  Report Type: 
  Country: None (occurrence: None)
  Receive Date: 20111005
  Receipt Date: 20110926
  Transmission Date: 20120403
  Serious: Yes (Hospitalization, Other)
  Sender: FDA-Public Use
  Company Number: US-GENZYME-CERZ-1002251

PATIENT
  Sex: Male
  Weight: 72.5 kg

DRUGS (3)
  1. ATENOLOL [Concomitant]
     Indication: CORONARY ARTERY DISEASE
     Dosage: 25 MG, QD
     Route: 065
  2. AMLODIPINE [Concomitant]
     Indication: CORONARY ARTERY DISEASE
     Dosage: 5 MG, QD
     Route: 065
  3. CEREZYME [Suspect]
     Indication: GAUCHER'S DISEASE
     Dosage: 121 U/KG, Q2W
     Route: 042
     Dates: start: 20091013

REACTIONS (2)
  - HIP FRACTURE [None]
  - FALL [None]
